FAERS Safety Report 6925839-X (Version None)
Quarter: 2010Q3

REPORT INFORMATION
  Report Type: 
  Country: None (occurrence: None)
  Receive Date: 20100816
  Receipt Date: 20100809
  Transmission Date: 20110219
  Serious: Yes (Hospitalization, Other)
  Sender: FDA-Public Use
  Company Number: CHPA2010US12887

PATIENT
  Age: 49 Year
  Sex: Female

DRUGS (1)
  1. PRIVATE LABEL (NCH) [Suspect]
     Indication: SMOKING CESSATION THERAPY
     Dosage: 21 MG, QD
     Route: 062
     Dates: start: 20040101, end: 20040101

REACTIONS (10)
  - BREAST CANCER [None]
  - CARTILAGE ATROPHY [None]
  - CHEST PAIN [None]
  - CHRONIC OBSTRUCTIVE PULMONARY DISEASE [None]
  - COUGH [None]
  - DISABILITY [None]
  - NERVOUSNESS [None]
  - OVERDOSE [None]
  - SURGERY [None]
  - TREATMENT NONCOMPLIANCE [None]
